FAERS Safety Report 11742767 (Version 1)
Quarter: 2015Q4

REPORT INFORMATION
  Report Type: Report from Study
  Country: NL (occurrence: NL)
  Receive Date: 20151116
  Receipt Date: 20151116
  Transmission Date: 20160304
  Serious: Yes (Other)
  Sender: FDA-Public Use
  Company Number: NL-AMGEN-NLDSL2015119304

PATIENT
  Age: 80 Year
  Sex: Female

DRUGS (13)
  1. XGEVA [Suspect]
     Active Substance: DENOSUMAB
     Indication: METASTASES TO BONE
     Dosage: 120 MG, Q4WK
     Route: 058
     Dates: start: 20130214
  2. ENALAPRIL [Concomitant]
     Active Substance: ENALAPRIL
     Dosage: 10 MG, UNK
     Route: 065
     Dates: start: 20150923
  3. FLURAZEPAM [Concomitant]
     Active Substance: FLURAZEPAM\FLURAZEPAM HYDROCHLORIDE
     Dosage: 15 MG, UNK
     Route: 065
     Dates: start: 20150603
  4. ACETYLSALICYLZUUR [Concomitant]
     Dosage: 80 MG, UNK
     Route: 065
     Dates: start: 20150602
  5. ASPIRIN. [Concomitant]
     Active Substance: ASPIRIN
     Dosage: 80 MG, UNK
     Route: 065
     Dates: start: 20150705, end: 20151002
  6. CALCIUM CARBONATE W/COLECALCIFEROL [Concomitant]
     Active Substance: CALCIUM CARBONATE\CHOLECALCIFEROL
     Dosage: 1,25G/400IE
     Route: 065
     Dates: start: 20150911
  7. PRAVASTATIN [Concomitant]
     Active Substance: PRAVASTATIN\PRAVASTATIN SODIUM
     Dosage: 10 MG, UNK
     Route: 065
     Dates: start: 20150602
  8. ESOMEPRAZOL                        /01479301/ [Concomitant]
     Active Substance: ESOMEPRAZOLE
     Dosage: 20 MG, UNK
     Route: 065
     Dates: start: 20150521
  9. ENALAPRIL MALEAT [Concomitant]
     Dosage: 10 MG, UNK
     Route: 065
     Dates: start: 20150705, end: 20151002
  10. MEGESTROL [Concomitant]
     Active Substance: MEGESTROL
     Dosage: 160 MG, UNK
     Route: 065
     Dates: start: 20150602, end: 20150926
  11. ESOMEPRAZOL SANDOZ                 /01479302/ [Concomitant]
     Dosage: 20 MG, UNK
     Route: 065
     Dates: start: 20150705
  12. METFORMINE HCL ACTAVIS [Concomitant]
     Dosage: 500 MG, UNK
     Route: 065
     Dates: start: 20150705, end: 20151002
  13. PRAVASTATIN [Concomitant]
     Active Substance: PRAVASTATIN\PRAVASTATIN SODIUM
     Dosage: 20 MG, UNK
     Route: 065
     Dates: start: 20150705, end: 20151002

REACTIONS (9)
  - Sigmoidoscopy abnormal [Unknown]
  - Cognitive disorder [Unknown]
  - Pneumonia [Unknown]
  - Breast cancer metastatic [Unknown]
  - Dyspnoea [Unknown]
  - Spondylolisthesis [Unknown]
  - Asthenia [Unknown]
  - Pleural effusion [Unknown]
  - Fatigue [Unknown]

NARRATIVE: CASE EVENT DATE: 20140224
